FAERS Safety Report 4337593-9 (Version None)
Quarter: 2004Q2

REPORT INFORMATION
  Report Type: 
  Country: None (occurrence: None)
  Receive Date: 20040413
  Receipt Date: 20031031
  Transmission Date: 20050107
  Serious: No
  Sender: FDA-Public Use
  Company Number: US-GLAXOSMITHKLINE-A0432432A

PATIENT
  Age: 56 Year
  Sex: Male

DRUGS (1)
  1. DEXEDRINE [Suspect]
     Indication: FATIGUE
     Dosage: 10MG PER DAY
     Route: 048
     Dates: start: 20031001

REACTIONS (1)
  - ANXIETY [None]
